FAERS Safety Report 21642589 (Version 1)
Quarter: 2022Q4

REPORT INFORMATION
  Report Type: Other
  Country: TR (occurrence: None)
  Receive Date: 20221125
  Receipt Date: 20221125
  Transmission Date: 20230112
  Serious: Yes (Death, Other)
  Sender: FDA-Public Use
  Company Number: TR-ROCHE-3224092

PATIENT
  Age: 17 Year
  Sex: Male

DRUGS (4)
  1. BEVACIZUMAB [Suspect]
     Active Substance: BEVACIZUMAB
     Indication: Desmoplastic small round cell tumour
     Route: 065
  2. VINCRISTINE [Suspect]
     Active Substance: VINCRISTINE
     Indication: Desmoplastic small round cell tumour
     Route: 065
  3. IRINOTECAN [Suspect]
     Active Substance: IRINOTECAN
     Indication: Desmoplastic small round cell tumour
     Route: 065
  4. TEMOZOLOMIDE [Suspect]
     Active Substance: TEMOZOLOMIDE
     Indication: Desmoplastic small round cell tumour
     Route: 065

REACTIONS (3)
  - Renal impairment [Fatal]
  - Disease progression [Fatal]
  - Thrombotic microangiopathy [Unknown]
